FAERS Safety Report 10166706 (Version 1)
Quarter: 2014Q2

REPORT INFORMATION
  Report Type: Spontaneous
  Country: GB (occurrence: None)
  Receive Date: 20140508
  Receipt Date: 20140508
  Transmission Date: 20141212
  Serious: Yes (Disabling)
  Sender: FDA-Public Use
  Company Number: AUR-APL-2014-05333

PATIENT
  Age: 21 Year
  Sex: Male
  Weight: 152.4 kg

DRUGS (1)
  1. SERTRALINE (SERTRALINE) [Suspect]
     Indication: DEPRESSION
     Route: 048
     Dates: start: 20121201, end: 20130131

REACTIONS (11)
  - Aggression [None]
  - Decreased appetite [None]
  - Dry mouth [None]
  - Ejaculation delayed [None]
  - Insomnia [None]
  - Irritability [None]
  - Lethargy [None]
  - Migraine [None]
  - Disturbance in sexual arousal [None]
  - Musculoskeletal stiffness [None]
  - Thirst [None]
